FAERS Safety Report 20814608 (Version 1)
Quarter: 2022Q2

REPORT INFORMATION
  Report Type: Spontaneous
  Country: None (occurrence: CA)
  Receive Date: 20220511
  Receipt Date: 20220511
  Transmission Date: 20220721
  Serious: Yes (Other)
  Sender: FDA-Public Use
  Company Number: CA-B.Braun Medical Inc.-2128685

PATIENT
  Age: 65 Year
  Sex: Male

DRUGS (2)
  1. SODIUM CHLORIDE [Suspect]
     Active Substance: SODIUM CHLORIDE
  2. ALANINE\ARGININE\CALCIUM CHLORIDE\DEXTROSE\GLYCINE\HISTIDINE\ISOLEUCIN [Suspect]
     Active Substance: ALANINE\ARGININE\CALCIUM CHLORIDE\DEXTROSE\GLYCINE\HISTIDINE\ISOLEUCINE\LEUCINE\LYSINE\MAGNESIUM CHL

REACTIONS (4)
  - General physical health deterioration [Unknown]
  - Hyperchloraemia [Unknown]
  - Metabolic acidosis [Unknown]
  - Respiratory failure [Unknown]
